FAERS Safety Report 14582457 (Version 1)
Quarter: 2018Q1

REPORT INFORMATION
  Report Type: Other
  Country: BE (occurrence: BE)
  Receive Date: 20180228
  Receipt Date: 20180228
  Transmission Date: 20180509
  Serious: Yes (Other)
  Sender: FDA-Public Use
  Company Number: BE-ASPEN-GLO2017BE009392

PATIENT
  Age: 82 Year
  Sex: Male

DRUGS (5)
  1. POMALIDOMIDE [Suspect]
     Active Substance: POMALIDOMIDE
     Indication: PLASMA CELL MYELOMA
     Dosage: 2 MG
     Route: 048
     Dates: start: 20150201, end: 20171001
  2. DEXAMETHASONE. [Suspect]
     Active Substance: DEXAMETHASONE
     Dosage: 1 UNK
     Route: 065
     Dates: start: 20121201, end: 20141101
  3. DEXAMETHASONE. [Suspect]
     Active Substance: DEXAMETHASONE
     Dosage: 10 MG
     Route: 065
     Dates: start: 20150201, end: 20171001
  4. DEXAMETHASONE. [Suspect]
     Active Substance: DEXAMETHASONE
     Dosage: 1 UNK
     Route: 065
     Dates: start: 20120401
  5. DEXAMETHASONE. [Suspect]
     Active Substance: DEXAMETHASONE
     Indication: PLASMA CELL MYELOMA
     Dosage: 1 UNK
     Route: 065
     Dates: start: 20110801, end: 20120326

REACTIONS (4)
  - Bone marrow toxicity [Unknown]
  - Atrial fibrillation [Unknown]
  - Hypertensive cardiomyopathy [Unknown]
  - Cytopenia [Unknown]

NARRATIVE: CASE EVENT DATE: 20171001
